FAERS Safety Report 14411475 (Version 1)
Quarter: 2018Q1

REPORT INFORMATION
  Report Type: Spontaneous
  Country: BR (occurrence: BR)
  Receive Date: 20180119
  Receipt Date: 20180119
  Transmission Date: 20180509
  Serious: Yes (Other)
  Sender: FDA-Public Use
  Company Number: BR-009507513-1705BRA000323

PATIENT
  Age: 21 Year
  Sex: Female
  Weight: 73 kg

DRUGS (1)
  1. NUVARING [Suspect]
     Active Substance: ETHINYL ESTRADIOL\ETONOGESTREL
     Indication: CONTRACEPTION
     Dosage: 1 RING FOR 3 WEEKS OF USE AND 1 WEEK OF PAUSE
     Route: 067
     Dates: start: 201510, end: 20170424

REACTIONS (8)
  - Pregnancy with contraceptive device [Unknown]
  - Syncope [Recovered/Resolved]
  - Product use issue [Unknown]
  - Pre-eclampsia [Unknown]
  - Unintended pregnancy [Unknown]
  - Caesarean section [Unknown]
  - Hypertension [Unknown]
  - Premature delivery [Unknown]

NARRATIVE: CASE EVENT DATE: 2017
